FAERS Safety Report 22232276 (Version 1)
Quarter: 2023Q2

REPORT INFORMATION
  Report Type: Spontaneous
  Country: US (occurrence: None)
  Receive Date: 20230420
  Receipt Date: 20230420
  Transmission Date: 20230722
  Serious: No
  Sender: FDA-Public Use
  Company Number: US-ROCHE-3054352

PATIENT
  Sex: Male

DRUGS (6)
  1. ESBRIET [Suspect]
     Active Substance: PIRFENIDONE
     Indication: Idiopathic pulmonary fibrosis
     Dosage: TAKE 3 TABLETS 3 TIMES A DAY WITH EACH MEAL
     Route: 048
  2. CLARITIN [Concomitant]
     Active Substance: LORATADINE
  3. EZETIMIBE [Concomitant]
     Active Substance: EZETIMIBE
  4. OFEV [Concomitant]
     Active Substance: NINTEDANIB
  5. PANTOPRAZOLE [Concomitant]
     Active Substance: PANTOPRAZOLE
  6. ROSUVASTATIN [Concomitant]
     Active Substance: ROSUVASTATIN

REACTIONS (1)
  - Photosensitivity reaction [Unknown]
